FAERS Safety Report 5301911-5 (Version None)
Quarter: 2007Q2

REPORT INFORMATION
  Report Type: 
  Country: None (occurrence: None)
  Receive Date: 20070419
  Receipt Date: 20070410
  Transmission Date: 20071010
  Serious: Yes (Other)
  Sender: FDA-Public Use
  Company Number: PHBS2006JP02775

PATIENT
  Age: 70 Year
  Sex: Male

DRUGS (5)
  1. LAMISIL [Suspect]
     Indication: NAIL TINEA
     Dosage: 125 MG/DAY
     Route: 048
     Dates: start: 20060118, end: 20060212
  2. MEXITIL [Concomitant]
     Indication: DIABETES MELLITUS
     Dosage: 150 MG/D
     Route: 048
     Dates: start: 20060118, end: 20060212
  3. DRENISON [Concomitant]
  4. HUMACART-N [Concomitant]
  5. NU-LOTAN [Concomitant]
     Route: 048

REACTIONS (14)
  - ALANINE AMINOTRANSFERASE INCREASED [None]
  - ARTHRALGIA [None]
  - ASPARTATE AMINOTRANSFERASE INCREASED [None]
  - ASTHENIA [None]
  - BLOOD CREATINE PHOSPHOKINASE INCREASED [None]
  - BLOOD LACTATE DEHYDROGENASE INCREASED [None]
  - GAMMA-GLUTAMYLTRANSFERASE INCREASED [None]
  - HYPOAESTHESIA [None]
  - MYALGIA [None]
  - PAIN [None]
  - PHYSICAL DISABILITY [None]
  - RHABDOMYOLYSIS [None]
  - SPINAL COLUMN STENOSIS [None]
  - STOMACH DISCOMFORT [None]
